FAERS Safety Report 9824943 (Version 2)
Quarter: 2014Q1

REPORT INFORMATION
  Report Type: Report from Study
  Country: CA (occurrence: CA)
  Receive Date: 20140117
  Receipt Date: 20140117
  Transmission Date: 20141002
  Serious: Yes (Hospitalization)
  Sender: FDA-Public Use
  Company Number: CA-JNJFOC-20130400861

PATIENT
  Age: 64 Year
  Sex: Male
  Weight: 85 kg

DRUGS (11)
  1. REMICADE [Suspect]
     Indication: ANKYLOSING SPONDYLITIS
     Route: 042
     Dates: start: 2006
  2. TIAZAC [Concomitant]
     Route: 048
  3. JANUVIA [Concomitant]
     Route: 048
  4. DIAMICRON MR [Concomitant]
     Route: 048
  5. ALTACE [Concomitant]
     Route: 048
  6. SIMVASTATIIN [Concomitant]
     Route: 048
  7. METHOTREXATE [Concomitant]
     Dosage: 5 TABLETS ONCE A WEEK
     Route: 048
  8. LIPIDIL [Concomitant]
     Route: 048
  9. PANTOPRAZOLE [Concomitant]
     Route: 048
  10. RATIO-METFORMIN [Concomitant]
     Dosage: THREE TABLETS ONCE A DAY
     Route: 048
  11. XARELTO [Concomitant]
     Indication: ANTICOAGULANT THERAPY
     Route: 048

REACTIONS (2)
  - Pulmonary embolism [Recovering/Resolving]
  - Deep vein thrombosis [Unknown]
